FAERS Safety Report 6999316-4 (Version None)
Quarter: 2010Q3

REPORT INFORMATION
  Report Type: 
  Country: None (occurrence: None)
  Receive Date: 20100920
  Receipt Date: 20091009
  Transmission Date: 20110219
  Serious: Yes (Other)
  Sender: FDA-Public Use
  Company Number: US-ASTRAZENECA-2007UW06043

PATIENT
  Age: 15814 Day
  Sex: Male
  Weight: 117.9 kg

DRUGS (18)
  1. SEROQUEL [Suspect]
     Indication: SLEEP DISORDER
     Route: 048
     Dates: start: 20010101, end: 20031001
  2. SEROQUEL [Suspect]
     Indication: DEPRESSION
     Route: 048
     Dates: start: 20010101, end: 20031001
  3. SEROQUEL [Suspect]
     Indication: BIPOLAR DISORDER
     Route: 048
     Dates: start: 20010101, end: 20031001
  4. SEROQUEL [Suspect]
     Indication: SCHIZOAFFECTIVE DISORDER
     Route: 048
     Dates: start: 20010101, end: 20031001
  5. RISPERDAL [Concomitant]
     Indication: DEPRESSION
     Dosage: 1 MG TO 6 MG
     Dates: start: 20060101
  6. RISPERDAL [Concomitant]
     Indication: BIPOLAR DISORDER
     Dosage: 1 MG TO 6 MG
     Dates: start: 20060101
  7. RISPERDAL [Concomitant]
     Indication: SCHIZOAFFECTIVE DISORDER
     Dosage: 1 MG TO 6 MG
     Dates: start: 20060101
  8. ZYPREXA [Concomitant]
     Indication: DEPRESSION
     Dates: start: 20070101
  9. ZYPREXA [Concomitant]
     Indication: BIPOLAR DISORDER
     Dates: start: 20070101
  10. ZYPREXA [Concomitant]
     Indication: SCHIZOAFFECTIVE DISORDER
     Dates: start: 20070101
  11. ABILIFY [Concomitant]
  12. HALDOL [Concomitant]
     Dates: start: 19800101
  13. NAVANE [Concomitant]
  14. PROLIXIN [Concomitant]
  15. TRAZODONE HCL [Concomitant]
  16. COGENTIN [Concomitant]
  17. TEGRETOL [Concomitant]
  18. ATIVAN [Concomitant]

REACTIONS (7)
  - BLOOD CHOLESTEROL INCREASED [None]
  - DIABETIC KETOACIDOSIS [None]
  - HYPERLIPIDAEMIA [None]
  - NECK INJURY [None]
  - OBESITY [None]
  - TARDIVE DYSKINESIA [None]
  - TYPE 2 DIABETES MELLITUS [None]
